FAERS Safety Report 20485043 (Version 2)
Quarter: 2022Q1

REPORT INFORMATION
  Report Type: Spontaneous
  Country: BE (occurrence: BE)
  Receive Date: 20220217
  Receipt Date: 20220317
  Transmission Date: 20220424
  Serious: Yes (Hospitalization)
  Sender: FDA-Public Use
  Company Number: BE-MYLANLABS-2022M1013191

PATIENT
  Age: 72 Year
  Sex: Female

DRUGS (5)
  1. VFEND [Interacting]
     Active Substance: VORICONAZOLE
     Indication: Bronchopulmonary aspergillosis
     Dosage: 6 MILLIGRAM/KILOGRAM, BID, CLASSIC LOADING DOSE
     Route: 065
  2. VFEND [Interacting]
     Active Substance: VORICONAZOLE
     Dosage: 4 MILLIGRAM/KILOGRAM, BID,  MAINTENANCE DOSE
     Route: 065
  3. VFEND [Interacting]
     Active Substance: VORICONAZOLE
     Dosage: 8 MILLIGRAM/KILOGRAM, BID
     Route: 065
  4. FLUCLOXACILLIN [Interacting]
     Active Substance: FLUCLOXACILLIN
     Indication: Staphylococcal infection
     Dosage: 1 GRAM, 6 TIMES 1G; HIGH DOSE
     Route: 065
  5. FLUCLOXACILLIN [Interacting]
     Active Substance: FLUCLOXACILLIN
     Dosage: 2 GRAM, 6 TIMES 2G; INCREASED DOSE
     Route: 065

REACTIONS (2)
  - Drug level decreased [Not Recovered/Not Resolved]
  - Drug interaction [Not Recovered/Not Resolved]
